FAERS Safety Report 8147607-6 (Version None)
Quarter: 2012Q1

REPORT INFORMATION
  Report Type: 
  Country: None (occurrence: None)
  Receive Date: 20120218
  Receipt Date: 20110302
  Transmission Date: 20120608
  Serious: No
  Sender: FDA-Public Use
  Company Number: US-ALLERGAN-1013174US

PATIENT
  Age: 63 Year
  Sex: Female
  Weight: 46.259 kg

DRUGS (1)
  1. BOTOX COSMETIC [Suspect]
     Indication: SKIN WRINKLING
     Dosage: 32.5 UNITS, SINGLE
     Route: 030
     Dates: start: 20100920, end: 20100920

REACTIONS (2)
  - EYELID PTOSIS [None]
  - MUSCLE TWITCHING [None]
